FAERS Safety Report 5798201-3 (Version None)
Quarter: 2008Q3

REPORT INFORMATION
  Report Type: 
  Country: None (occurrence: None)
  Receive Date: 20080702
  Receipt Date: 20080630
  Transmission Date: 20090109
  Serious: Yes (Hospitalization)
  Sender: FDA-Public Use
  Company Number: B0520937A

PATIENT
  Age: 71 Year
  Sex: Female

DRUGS (11)
  1. VALTREX [Suspect]
     Indication: HERPES ZOSTER
     Dosage: 1000MG THREE TIMES PER DAY
     Route: 048
     Dates: start: 20080512, end: 20080515
  2. MOBIC [Concomitant]
     Indication: BACK PAIN
     Dosage: 10MG PER DAY
     Route: 048
     Dates: start: 20080509, end: 20080515
  3. ASPIRIN [Concomitant]
     Dosage: 100MG PER DAY
     Route: 048
     Dates: start: 20040501
  4. ENALAPRIL MALEATE [Concomitant]
     Dosage: 5MG PER DAY
     Route: 048
     Dates: start: 20040501
  5. NORVASC [Concomitant]
     Dosage: 5MG PER DAY
     Route: 048
     Dates: start: 20060401
  6. UNKNOWN DRUG [Concomitant]
     Dosage: 250MG PER DAY
     Route: 048
     Dates: start: 20060401
  7. FUROSEMIDE [Concomitant]
     Dosage: 20MG PER DAY
     Route: 048
     Dates: start: 20060401
  8. SPIRONOLACTONE [Concomitant]
     Dosage: 25MG PER DAY
     Route: 048
     Dates: start: 20060401
  9. SENNOSIDE [Concomitant]
     Dosage: 36MG PER DAY
     Route: 048
     Dates: start: 20040501
  10. ALOSENN [Concomitant]
     Dosage: .5G PER DAY
     Route: 048
     Dates: start: 20040501
  11. NESGEN [Concomitant]
     Indication: INSOMNIA
     Dosage: .25MG PER DAY
     Route: 048
     Dates: start: 20040501

REACTIONS (6)
  - BLOOD CREATININE INCREASED [None]
  - BLOOD POTASSIUM INCREASED [None]
  - BLOOD SODIUM DECREASED [None]
  - BLOOD UREA INCREASED [None]
  - OEDEMA [None]
  - RENAL DISORDER [None]
